FAERS Safety Report 7536135-4 (Version None)
Quarter: 2011Q2

REPORT INFORMATION
  Report Type: 
  Country: None (occurrence: None)
  Receive Date: 20110608
  Receipt Date: 20110608
  Transmission Date: 20111010
  Serious: Yes (Hospitalization)
  Sender: FDA-Public Use
  Company Number: None

PATIENT
  Sex: Female
  Weight: 84.369 kg

DRUGS (1)
  1. REVATIO [Suspect]
     Indication: COR PULMONALE CHRONIC
     Dosage: 20 MG TID PO
     Route: 048
     Dates: start: 20110603

REACTIONS (2)
  - SYNCOPE [None]
  - CARDIAC FAILURE CONGESTIVE [None]
